FAERS Safety Report 6083934-4 (Version None)
Quarter: 2009Q1

REPORT INFORMATION
  Report Type: 
  Country: None (occurrence: None)
  Receive Date: 20090217
  Receipt Date: 20090217
  Transmission Date: 20090719
  Serious: No
  Sender: FDA-Public Use
  Company Number: None

PATIENT
  Age: 17 Year
  Sex: Female

DRUGS (1)
  1. OXCARBAZEPINE [Suspect]
     Dosage: 150MG PO BID
     Route: 048
     Dates: start: 20090112, end: 20090117

REACTIONS (2)
  - PRODUCT QUALITY ISSUE [None]
  - TREMOR [None]
